FAERS Safety Report 12305403 (Version 1)
Quarter: 2016Q2

REPORT INFORMATION
  Report Type: Report from Study
  Country: US (occurrence: US)
  Receive Date: 20160426
  Receipt Date: 20160426
  Transmission Date: 20160815
  Serious: Yes (Hospitalization)
  Sender: FDA-Public Use
  Company Number: US-ROCHE-1746010

PATIENT
  Sex: Male
  Weight: 60.38 kg

DRUGS (3)
  1. ESBRIET [Suspect]
     Active Substance: PIRFENIDONE
     Indication: IDIOPATHIC PULMONARY FIBROSIS
     Route: 065
  2. LASIX [Concomitant]
     Active Substance: FUROSEMIDE
  3. LEVOTHYROXINE. [Concomitant]
     Active Substance: LEVOTHYROXINE

REACTIONS (9)
  - Liver disorder [Unknown]
  - Hepatic cirrhosis [Unknown]
  - Hepatic haemorrhage [Unknown]
  - Blood iron decreased [Unknown]
  - Abdominal distension [Unknown]
  - Appetite disorder [Unknown]
  - Dysphagia [Unknown]
  - Asthenia [Unknown]
  - Full blood count decreased [Unknown]
